FAERS Safety Report 4362743-8 (Version None)
Quarter: 2004Q2

REPORT INFORMATION
  Report Type: 
  Country: None (occurrence: None)
  Receive Date: 20040518
  Receipt Date: 20040322
  Transmission Date: 20050107
  Serious: Yes (Other)
  Sender: FDA-Public Use
  Company Number: WAES 0309GBR00315

PATIENT
  Age: 69 Year
  Sex: Male

DRUGS (8)
  1. ZOCOR [Suspect]
     Indication: CORONARY ARTERY DISEASE
     Dosage: 80 MG/DAILY PO
     Route: 048
     Dates: start: 20000301, end: 20030923
  2. TAB BLINDED THERAPY [Suspect]
     Indication: CORONARY ARTERY DISEASE
     Dosage: PO
     Route: 048
     Dates: start: 20000301, end: 20030923
  3. TAB BLINDED  THERAPY [Suspect]
     Indication: CORONARY ARTERY DISEASE
     Dosage: PO
     Route: 048
     Dates: start: 20000301, end: 20030923
  4. BICALUTAMIDE [Suspect]
     Indication: BONE CANCER METASTATIC
     Dates: start: 20030601, end: 20030801
  5. ASPIRIN [Concomitant]
  6. ATENOLOL AND CHLORTHALIDONE [Concomitant]
  7. LOSARAN POTASSIUM [Concomitant]
  8. RANITIDINE [Concomitant]

REACTIONS (7)
  - ALANINE AMINOTRANSFERASE INCREASED [None]
  - BLOOD CREATINE PHOSPHOKINASE INCREASED [None]
  - DRUG INTERACTION [None]
  - MUSCULAR WEAKNESS [None]
  - MYALGIA [None]
  - MYOPATHY [None]
  - PROSTATE CANCER METASTATIC [None]
